FAERS Safety Report 7804931-1 (Version None)
Quarter: 2011Q4

REPORT INFORMATION
  Report Type: 
  Country: None (occurrence: None)
  Receive Date: 20111010
  Receipt Date: 20111004
  Transmission Date: 20120403
  Serious: Yes (Hospitalization, Other)
  Sender: FDA-Public Use
  Company Number: US-ROXANE LABORATORIES, INC.-2011-RO-01398RO

PATIENT
  Age: 50 Year
  Sex: Male

DRUGS (8)
  1. AZATHIOPRINE [Suspect]
     Dosage: 25 MG
  2. PREDNISONE [Suspect]
     Indication: PANCREAS TRANSPLANT
  3. AZATHIOPRINE [Suspect]
     Indication: PROTEINURIA
     Dosage: 100 MG
  4. TACROLIMUS [Suspect]
     Indication: RENAL TRANSPLANT
     Dosage: 8 MG
  5. PREDNISONE [Suspect]
     Indication: RENAL TRANSPLANT
  6. MYCOPHENOLATE MOFETIL [Suspect]
     Indication: RENAL TRANSPLANT
     Dosage: 1000 MG
  7. TACROLIMUS [Suspect]
     Indication: PANCREAS TRANSPLANT
  8. MYCOPHENOLATE MOFETIL [Suspect]
     Indication: PANCREAS TRANSPLANT

REACTIONS (7)
  - PANCYTOPENIA [None]
  - GASTROINTESTINAL DISORDER [None]
  - CHRONIC ALLOGRAFT NEPHROPATHY [None]
  - TRANSPLANT REJECTION [None]
  - RENAL FAILURE ACUTE [None]
  - BONE MARROW FAILURE [None]
  - PROTEINURIA [None]
